FAERS Safety Report 14896212 (Version 1)
Quarter: 2018Q2

REPORT INFORMATION
  Report Type: Spontaneous
  Country: US (occurrence: US)
  Receive Date: 20180427
  Receipt Date: 20180427
  Transmission Date: 20180711
  Serious: Yes (Hospitalization)
  Sender: FDA-Public Use
  Company Number: None

PATIENT
  Age: 29 Year
  Sex: Male
  Weight: 93.7 kg

DRUGS (2)
  1. ETOPOSIDE. [Suspect]
     Active Substance: ETOPOSIDE
     Dates: end: 20180408
  2. CARBOPLATIN. [Suspect]
     Active Substance: CARBOPLATIN
     Dates: end: 20180408

REACTIONS (7)
  - Nausea [None]
  - Neutropenia [None]
  - Abdominal pain [None]
  - Vomiting [None]
  - Diarrhoea [None]
  - Pyrexia [None]
  - Decreased appetite [None]

NARRATIVE: CASE EVENT DATE: 20180416
